FAERS Safety Report 13517533 (Version 2)
Quarter: 2017Q3

REPORT INFORMATION
  Report Type: Report from Study
  Country: US (occurrence: US)
  Receive Date: 20170505
  Receipt Date: 20170703
  Transmission Date: 20171127
  Serious: No
  Sender: FDA-Public Use
  Company Number: US-AMGEN-USASL2017066778

PATIENT
  Age: 72 Year
  Sex: Female

DRUGS (1)
  1. ENBREL [Suspect]
     Active Substance: ETANERCEPT
     Indication: PSORIATIC ARTHROPATHY
     Dosage: 5 MG, QWK
     Route: 065

REACTIONS (5)
  - Injection site erythema [Recovering/Resolving]
  - Injection site pruritus [Unknown]
  - Arthralgia [Recovering/Resolving]
  - Limb discomfort [Unknown]
  - Off label use [Unknown]

NARRATIVE: CASE EVENT DATE: 201704
